FAERS Safety Report 14851914 (Version 1)
Quarter: 2018Q2

REPORT INFORMATION
  Report Type: Spontaneous
  Country: FR (occurrence: FR)
  Receive Date: 20180507
  Receipt Date: 20180507
  Transmission Date: 20180711
  Serious: Yes (Other)
  Sender: FDA-Public Use
  Company Number: FR-MERCK KGAA-2047294

PATIENT
  Age: 51 Year
  Sex: Male
  Weight: 111 kg

DRUGS (1)
  1. NOVOTHYROX [Suspect]
     Active Substance: LEVOTHYROXINE SODIUM
     Indication: PRODUCT USED FOR UNKNOWN INDICATION
     Dates: end: 2017

REACTIONS (26)
  - Social avoidant behaviour [None]
  - Haemoglobin increased [None]
  - Apathy [None]
  - Depression [None]
  - Fatigue [None]
  - Asthenia [None]
  - Musculoskeletal stiffness [None]
  - Blood creatinine increased [None]
  - Partner stress [None]
  - Suicidal ideation [None]
  - Disorientation [None]
  - Loss of personal independence in daily activities [None]
  - Muscle spasms [None]
  - Myalgia [Recovering/Resolving]
  - Hypoaesthesia [None]
  - Insomnia [Recovering/Resolving]
  - Lethargy [None]
  - Thyroxine free increased [Recovered/Resolved]
  - Vertigo [Recovering/Resolving]
  - Headache [Recovering/Resolving]
  - Red blood cell count increased [None]
  - Cognitive disorder [None]
  - Disturbance in attention [None]
  - Amnesia [None]
  - Decreased interest [None]
  - Haematocrit increased [None]

NARRATIVE: CASE EVENT DATE: 20170719
